FAERS Safety Report 8180232-X (Version None)
Quarter: 2012Q1

REPORT INFORMATION
  Report Type: 
  Country: None (occurrence: None)
  Receive Date: 20120229
  Receipt Date: 20120221
  Transmission Date: 20120608
  Serious: Yes (Hospitalization)
  Sender: FDA-Public Use
  Company Number: 1204458

PATIENT
  Age: 15 Year
  Sex: Female

DRUGS (4)
  1. DOXORUBICIN HCL [Suspect]
     Indication: SYNOVIAL SARCOMA
  2. IFOSFAMIDE [Suspect]
     Indication: SYNOVIAL SARCOMA
  3. VINCRISTINE SULFATE [Suspect]
     Indication: SYNOVIAL SARCOMA
  4. DACTINOMYCIN [Suspect]
     Indication: SYNOVIAL SARCOMA

REACTIONS (7)
  - NEUTROPENIA [None]
  - THROMBOCYTOPENIA [None]
  - PYREXIA [None]
  - NAUSEA [None]
  - ABDOMINAL PAIN [None]
  - C-REACTIVE PROTEIN INCREASED [None]
  - CAECITIS [None]
